FAERS Safety Report 17887056 (Version 1)
Quarter: 2020Q2

REPORT INFORMATION
  Report Type: Spontaneous
  Country: US (occurrence: US)
  Receive Date: 20200611
  Receipt Date: 20200611
  Transmission Date: 20200714
  Serious: No
  Sender: FDA-Public Use
  Company Number: US-BRACCO-2019US03632

PATIENT
  Age: 31 Year
  Sex: Female

DRUGS (3)
  1. BENADRYL [Concomitant]
     Active Substance: DIPHENHYDRAMINE HYDROCHLORIDE
     Dosage: 50 MG, 1 HR PRIOR TO MRI
     Route: 048
     Dates: start: 201907, end: 201907
  2. PREDNISONE. [Concomitant]
     Active Substance: PREDNISONE
     Dosage: 50 ML AT 13 HR, 7 HR AND 1 HR PRIOR TO MRI
     Route: 048
     Dates: start: 201907, end: 201907
  3. MULTIHANCE [Suspect]
     Active Substance: GADOBENATE DIMEGLUMINE
     Indication: MAGNETIC RESONANCE IMAGING BRAIN
     Dosage: 16 ML, SINGLE
     Route: 042
     Dates: start: 20190718, end: 20190718

REACTIONS (2)
  - Hypersensitivity [Recovered/Resolved]
  - Contraindicated product administered [Recovered/Resolved]

NARRATIVE: CASE EVENT DATE: 20190718
